APPROVED DRUG PRODUCT: CEFIZOX
Active Ingredient: CEFTIZOXIME SODIUM
Strength: EQ 10GM BASE/VIAL
Dosage Form/Route: INJECTABLE;INJECTION
Application: N050560 | Product #005
Applicant: ASTELLAS PHARMA US INC
Approved: Mar 19, 1993 | RLD: No | RS: No | Type: DISCN